FAERS Safety Report 9425259 (Version 3)
Quarter: 2015Q4

REPORT INFORMATION
  Report Type: Spontaneous
  Country: JP (occurrence: JP)
  Receive Date: 20130729
  Receipt Date: 20151123
  Transmission Date: 20160305
  Serious: Yes (Death, Hospitalization, Other)
  Sender: FDA-Public Use
  Company Number: JP-BAYER-2013-090699

PATIENT
  Age: 69 Year
  Sex: Female
  Weight: 51 kg

DRUGS (8)
  1. STIVARGA [Suspect]
     Active Substance: REGORAFENIB
     Indication: COLORECTAL CANCER
     Dosage: 160 MG, QD
     Route: 048
     Dates: start: 20130704, end: 20130716
  2. URSO [Concomitant]
     Active Substance: URSODIOL
     Indication: RECTAL CANCER
     Dosage: DAILY DOSE 300 MG
     Route: 048
     Dates: end: 20130812
  3. NEO-MINOPHAGEN C [Concomitant]
     Active Substance: AMMONIUM GLYCYRRHIZATE
     Indication: RECTAL CANCER
     Dosage: DAILY DOSE 20 ML
     Dates: end: 20130801
  4. MAGLAX [Concomitant]
     Active Substance: MAGNESIUM OXIDE
     Indication: RECTAL CANCER
     Dosage: DAILY DOSE 990 MG
     Route: 048
     Dates: end: 20130812
  5. LOXONIN [Concomitant]
     Active Substance: LOXOPROFEN SODIUM
     Indication: RECTAL CANCER
     Dosage: DAILY DOSE 180 MG
     Route: 048
     Dates: end: 20130812
  6. OXYCONTIN [Concomitant]
     Active Substance: OXYCODONE HYDROCHLORIDE
     Indication: RECTAL CANCER
     Dosage: DAILY DOSE 20 MG
     Route: 048
     Dates: end: 20130728
  7. LANSOPRAZOLE. [Concomitant]
     Active Substance: LANSOPRAZOLE
     Indication: RECTAL CANCER
     Dosage: DAILY DOSE 15 MG
     Route: 048
     Dates: end: 20130812
  8. PURSENNID [Concomitant]
     Active Substance: SENNOSIDES A AND B
     Indication: RECTAL CANCER
     Dosage: UNK
     Route: 048
     Dates: end: 20130812

REACTIONS (4)
  - Interstitial lung disease [Recovered/Resolved]
  - Rectal cancer [Fatal]
  - Hepatic failure [Fatal]
  - Hypertension [Recovering/Resolving]

NARRATIVE: CASE EVENT DATE: 20130706
